FAERS Safety Report 6498398-6 (Version None)
Quarter: 2009Q4

REPORT INFORMATION
  Report Type: 
  Country: None (occurrence: None)
  Receive Date: 20091215
  Receipt Date: 20091130
  Transmission Date: 20100525
  Serious: Yes (Hospitalization)
  Sender: FDA-Public Use
  Company Number: A0765563C

PATIENT
  Sex: Female
  Weight: 66 kg

DRUGS (3)
  1. OFATUMUMAB [Suspect]
     Dosage: 1000MG MONTHLY
     Route: 042
     Dates: start: 20080714, end: 20081202
  2. FLUDARABINE [Suspect]
     Dosage: 44MG MONTHLY
     Route: 042
     Dates: start: 20080715, end: 20081204
  3. CYCLOPHOSPHAMIDE [Suspect]
     Dosage: 440MG MONTHLY
     Route: 042
     Dates: start: 20080715, end: 20081204

REACTIONS (6)
  - CHILLS [None]
  - FEBRILE NEUTROPENIA [None]
  - MOUTH ULCERATION [None]
  - NIGHT SWEATS [None]
  - ORAL PAIN [None]
  - STOMATITIS [None]
